FAERS Safety Report 16774452 (Version 1)
Quarter: 2019Q3

REPORT INFORMATION
  Report Type: Spontaneous
  Country: ES (occurrence: ES)
  Receive Date: 20190905
  Receipt Date: 20190905
  Transmission Date: 20191005
  Serious: Yes (Hospitalization, Other)
  Sender: FDA-Public Use
  Company Number: ES-ADVANZ PHARMA-E2B_00013284

PATIENT

DRUGS (5)
  1. ADIRO [Suspect]
     Active Substance: ASPIRIN
     Indication: ACUTE MYOCARDIAL INFARCTION
     Dosage: 100 MG, QD
     Route: 048
     Dates: start: 20180312
  2. BRILIQUE [Suspect]
     Active Substance: TICAGRELOR
     Indication: ACUTE MYOCARDIAL INFARCTION
     Dosage: 90 MG, BID
     Route: 048
     Dates: start: 20180312
  3. SYRON (FERRIMANNITOL OVALBUMIN) [Suspect]
     Active Substance: FERRIC OXIDE RED
     Indication: ANAEMIA
     Dosage: 80 MG, QD
     Route: 048
     Dates: start: 20180427
  4. ZONEGRAN [Suspect]
     Active Substance: ZONISAMIDE
     Indication: TREMOR
     Dosage: 50 MG, QD
     Route: 048
     Dates: start: 20160316
  5. ATORVASTAINA [Suspect]
     Active Substance: ATORVASTATIN CALCIUM
     Indication: ACUTE MYOCARDIAL INFARCTION
     Dosage: 40 UNK, QD
     Route: 048
     Dates: start: 20180312, end: 20180615

REACTIONS (1)
  - Hepatitis toxic [Recovering/Resolving]

NARRATIVE: CASE EVENT DATE: 20180607
